FAERS Safety Report 5950720-2 (Version None)
Quarter: 2008Q4

REPORT INFORMATION
  Report Type: 
  Country: None (occurrence: None)
  Receive Date: 20081022
  Receipt Date: 20080730
  Transmission Date: 20090506
  Serious: No
  Sender: FDA-Public Use
  Company Number: ALL1-2008-02163

PATIENT
  Age: 8 Year
  Sex: Male
  Weight: 37.6 kg

DRUGS (2)
  1. VYVANSE [Suspect]
     Indication: ATTENTION DEFICIT/HYPERACTIVITY DISORDER
     Dosage: 30 MG, 1X/DAY:QD,ORAL; HALF OF A 30 MG CAPSULE, 1X/DAY:QD,ORAL
     Route: 048
     Dates: start: 20080722, end: 20080724
  2. VYVANSE [Suspect]
     Indication: ATTENTION DEFICIT/HYPERACTIVITY DISORDER
     Dosage: 30 MG, 1X/DAY:QD,ORAL; HALF OF A 30 MG CAPSULE, 1X/DAY:QD,ORAL
     Route: 048
     Dates: start: 20080724

REACTIONS (5)
  - ABDOMINAL DISCOMFORT [None]
  - DRUG EFFECT DECREASED [None]
  - DRUG PRESCRIBING ERROR [None]
  - FEELING ABNORMAL [None]
  - MUSCULAR WEAKNESS [None]
